FAERS Safety Report 14618484 (Version 1)
Quarter: 2018Q1

REPORT INFORMATION
  Report Type: Spontaneous
  Country: US (occurrence: US)
  Receive Date: 20180309
  Receipt Date: 20180309
  Transmission Date: 20180509
  Serious: Yes (Hospitalization, Other)
  Sender: FDA-Public Use
  Company Number: US-SAOL THERAPEUTICS-2018SAO00133

PATIENT
  Age: 59 Year
  Sex: Male
  Weight: 79.82 kg

DRUGS (14)
  1. PRILOSEC [Concomitant]
     Active Substance: OMEPRAZOLE MAGNESIUM
  2. NIZORAL [Concomitant]
     Active Substance: KETOCONAZOLE
  3. NITRO-BID [Concomitant]
     Active Substance: NITROGLYCERIN
  4. NUPERCAINAL [Concomitant]
     Active Substance: DIBUCAINE
  5. BMX [Concomitant]
  6. MIRALAX [Concomitant]
     Active Substance: POLYETHYLENE GLYCOL 3350
  7. LIORESAL [Suspect]
     Active Substance: BACLOFEN
     Indication: MUSCLE SPASTICITY
     Dosage: 250 ?G/ML, \DAY
     Route: 037
     Dates: start: 201410
  8. MAGIC BULLETS [Concomitant]
  9. ELAVIL [Concomitant]
     Active Substance: AMITRIPTYLINE HYDROCHLORIDE
  10. MORPHIINE [Suspect]
     Active Substance: MORPHINE
     Dosage: UNK MG/ML, \DAY
     Route: 037
  11. COLACE [Concomitant]
     Active Substance: DOCUSATE SODIUM
  12. ASCORBIC ACID. [Concomitant]
     Active Substance: ASCORBIC ACID
  13. MUTIVITAMINS WITH MINERALS/IRON [Concomitant]
  14. TYLENOL [Concomitant]
     Active Substance: ACETAMINOPHEN

REACTIONS (26)
  - Chest pain [Unknown]
  - Beta haemolytic streptococcal infection [Unknown]
  - Hyperglycaemia [Unknown]
  - Hypersensitivity [Unknown]
  - Paraesthesia [Unknown]
  - Hypoaesthesia [Unknown]
  - Scoliosis [Unknown]
  - Mood altered [Unknown]
  - Therapy non-responder [Unknown]
  - Chills [Unknown]
  - Abdominal pain lower [None]
  - Muscle spasms [Unknown]
  - Pain [Unknown]
  - Wound infection pseudomonas [Unknown]
  - Wound infection staphylococcal [Unknown]
  - Depression [Unknown]
  - Blood pressure systolic decreased [Recovering/Resolving]
  - Overdose [Unknown]
  - Joint ankylosis [Unknown]
  - Osteoarthritis [Unknown]
  - Sepsis [Unknown]
  - Osteosclerosis [Unknown]
  - Anxiety [Unknown]
  - Myalgia [Unknown]
  - Chest discomfort [Unknown]
  - Device malfunction [Unknown]

NARRATIVE: CASE EVENT DATE: 20170605
